FAERS Safety Report 21610943 (Version 2)
Quarter: 2022Q4

REPORT INFORMATION
  Report Type: Spontaneous
  Country: US (occurrence: US)
  Receive Date: 20221117
  Receipt Date: 20221214
  Transmission Date: 20230113
  Serious: Yes (Other)
  Sender: FDA-Public Use
  Company Number: US-TEVA-2022-US-2826236

PATIENT
  Age: 10 Year
  Sex: Male

DRUGS (1)
  1. VINCRISTINE [Suspect]
     Active Substance: VINCRISTINE
     Indication: Precursor T-lymphoblastic lymphoma/leukaemia
     Route: 065

REACTIONS (4)
  - Peripheral sensorimotor neuropathy [Unknown]
  - Optic atrophy [Unknown]
  - Maculopathy [Unknown]
  - Hemianopia [Unknown]
